FAERS Safety Report 4430516-3 (Version None)
Quarter: 2004Q3

REPORT INFORMATION
  Report Type: 
  Country: None (occurrence: None)
  Receive Date: 20040721
  Receipt Date: 20030806
  Transmission Date: 20050211
  Serious: Yes (Hospitalization)
  Sender: FDA-Public Use
  Company Number: OMPQ-PR-0308S-0546(0)

PATIENT
  Age: 77 Year
  Sex: Female

DRUGS (2)
  1. OMNIPAQUE 140 [Suspect]
     Dosage: SINGLE DOSE, I.V.
     Route: 042
     Dates: start: 20030618, end: 20030618
  2. STEROID PREP [Concomitant]

REACTIONS (1)
  - ANAPHYLACTIC REACTION [None]
